FAERS Safety Report 22928383 (Version 2)
Quarter: 2024Q1

REPORT INFORMATION
  Report Type: Report from Study
  Country: CA (occurrence: CA)
  Receive Date: 20230911
  Receipt Date: 20240212
  Transmission Date: 20240410
  Serious: Yes (Other)
  Sender: FDA-Public Use
  Company Number: CA-TAKEDA-2021TUS002786

PATIENT
  Age: 45 Year
  Sex: Male

DRUGS (3)
  1. VEDOLIZUMAB [Suspect]
     Active Substance: VEDOLIZUMAB
     Indication: Crohn^s disease
     Dosage: 300 MILLIGRAM
     Route: 042
     Dates: start: 20200727
  2. VEDOLIZUMAB [Suspect]
     Active Substance: VEDOLIZUMAB
     Dosage: 300 MILLIGRAM, Q4WEEKS
     Route: 042
     Dates: start: 20211125
  3. PREDNISONE [Concomitant]
     Active Substance: PREDNISONE
     Dosage: UNK

REACTIONS (12)
  - Crohn^s disease [Unknown]
  - Diarrhoea [Unknown]
  - Faeces soft [Unknown]
  - Abdominal mass [Unknown]
  - Defaecation urgency [Unknown]
  - Anal incontinence [Unknown]
  - Fistula [Unknown]
  - Off label use [Unknown]
  - Impaired quality of life [Unknown]
  - Abdominal pain [Unknown]
  - Abdominal distension [Unknown]
  - Arthralgia [Unknown]

NARRATIVE: CASE EVENT DATE: 20211125
